FAERS Safety Report 6920047-0 (Version None)
Quarter: 2010Q3

REPORT INFORMATION
  Report Type: 
  Country: None (occurrence: None)
  Receive Date: 20100811
  Receipt Date: 20100730
  Transmission Date: 20110219
  Serious: Yes (Hospitalization, Other)
  Sender: FDA-Public Use
  Company Number: CO-PFIZER INC-2010096847

PATIENT
  Age: 74 Year
  Sex: Male

DRUGS (5)
  1. LYRICA [Suspect]
     Indication: DIABETIC NEUROPATHY
     Dosage: 75 MG, 1X/DAY
     Route: 048
     Dates: start: 20060101
  2. INSULIN [Concomitant]
     Dosage: 10 IU, 1X/DAY
  3. VITAMIN B COMPLEX CAP [Concomitant]
  4. FUROSEMIDE [Concomitant]
  5. CALCIUM CARBONATE [Concomitant]

REACTIONS (4)
  - DIABETIC COMA [None]
  - LUNG DISORDER [None]
  - RENAL FAILURE [None]
  - TRANSPLANT REJECTION [None]
